FAERS Safety Report 13096717 (Version 5)
Quarter: 2017Q3

REPORT INFORMATION
  Report Type: Spontaneous
  Country: GB (occurrence: GB)
  Receive Date: 20170109
  Receipt Date: 20170920
  Transmission Date: 20171127
  Serious: Yes (Hospitalization)
  Sender: FDA-Public Use
  Company Number: GB-TEVA-726360ACC

PATIENT
  Age: 78 Year
  Sex: Male

DRUGS (14)
  1. ASPIRIN? [Concomitant]
     Route: 048
  2. CLARITHROMYCIN. [Concomitant]
     Active Substance: CLARITHROMYCIN
     Dosage: 1200 MILLIGRAM DAILY;
     Route: 048
  3. RAMIPRIL. [Concomitant]
     Active Substance: RAMIPRIL
     Dosage: 2.5 MILLIGRAM DAILY;
     Route: 048
  4. CISPLATIN. [Suspect]
     Active Substance: CISPLATIN
     Indication: HER-2 POSITIVE GASTRIC CANCER
     Route: 042
     Dates: start: 20161216, end: 20161216
  5. XELODA [Suspect]
     Active Substance: CAPECITABINE
     Dosage: 3500 MILLIGRAM DAILY;
     Route: 048
     Dates: start: 20161216, end: 20161216
  6. ISOSORBIDE DINITRATE? [Concomitant]
     Dosage: 40 MILLIGRAM DAILY;
     Route: 048
  7. FLUOROURACIL. [Suspect]
     Active Substance: FLUOROURACIL
     Indication: HER-2 POSITIVE GASTRIC CANCER
     Route: 042
     Dates: start: 20161216, end: 20161216
  8. PERTUZUMAB. [Suspect]
     Active Substance: PERTUZUMAB
     Indication: HER-2 POSITIVE GASTRIC CANCER
     Route: 042
     Dates: start: 20161216, end: 20161216
  9. CLOPIDOGREL [Concomitant]
     Active Substance: CLOPIDOGREL BISULFATE
     Dosage: 150 MILLIGRAM DAILY;
     Route: 048
  10. DILTIAZEM. [Concomitant]
     Active Substance: DILTIAZEM
     Dosage: 240 MILLIGRAM DAILY;
     Route: 048
  11. HERCEPTIN [Suspect]
     Active Substance: TRASTUZUMAB
     Dosage: 556 MILLIGRAM DAILY;
     Route: 042
     Dates: start: 20161216, end: 20161216
  12. HERCEPTIN [Suspect]
     Active Substance: TRASTUZUMAB
     Indication: HER-2 POSITIVE GASTRIC CANCER
     Route: 042
     Dates: start: 20161216
  13. XELODA [Suspect]
     Active Substance: CAPECITABINE
     Indication: HER-2 POSITIVE GASTRIC CANCER
     Route: 048
     Dates: start: 20161216
  14. OMEPRAZOLE. [Concomitant]
     Active Substance: OMEPRAZOLE
     Indication: GASTROOESOPHAGEAL REFLUX DISEASE
     Dosage: 400 MILLIGRAM DAILY;
     Route: 048

REACTIONS (1)
  - Arteriospasm coronary [Recovered/Resolved with Sequelae]

NARRATIVE: CASE EVENT DATE: 20161220
